FAERS Safety Report 9072848 (Version 2)
Quarter: 2013Q1

REPORT INFORMATION
  Report Type: Spontaneous
  Country: JP (occurrence: JP)
  Receive Date: 20130207
  Receipt Date: 20130304
  Transmission Date: 20140127
  Serious: Yes (Hospitalization)
  Sender: FDA-Public Use
  Company Number: JP-ASTELLAS-2013JP001297

PATIENT
  Age: 75 Year
  Sex: Female

DRUGS (4)
  1. PROGRAF [Suspect]
     Indication: RHEUMATOID ARTHRITIS
     Dosage: 1.5 MG, UID/QD
     Route: 048
     Dates: start: 201205, end: 201212
  2. PROGRAF [Suspect]
     Dosage: 1 MG, UID/QD
     Route: 048
     Dates: start: 20120110, end: 201205
  3. RHEUMATREX                         /00113801/ [Concomitant]
     Dosage: 5 MG, WEEKLY
     Route: 048
     Dates: end: 20121124
  4. PREDONINE                          /00016201/ [Concomitant]
     Dosage: 5 MG, UID/QD
     Route: 048

REACTIONS (2)
  - Intentional drug misuse [Unknown]
  - Renal disorder [Not Recovered/Not Resolved]
